FAERS Safety Report 5004264-5 (Version None)
Quarter: 2006Q2

REPORT INFORMATION
  Report Type: 
  Country: None (occurrence: None)
  Receive Date: 20060517
  Receipt Date: 20050520
  Transmission Date: 20061013
  Serious: Yes (Hospitalization)
  Sender: FDA-Public Use
  Company Number: US-MERCK-0505USA02569

PATIENT
  Age: 76 Year
  Sex: Female
  Weight: 51 kg

DRUGS (12)
  1. VIOXX [Suspect]
     Indication: OSTEOARTHRITIS
     Route: 048
     Dates: start: 20020214, end: 20031001
  2. VIOXX [Suspect]
     Indication: BACK PAIN
     Route: 048
     Dates: start: 20020214, end: 20031001
  3. TYLENOL (CAPLET) [Concomitant]
     Route: 065
  4. L-THYROXIN [Concomitant]
     Route: 065
  5. PREMARIN [Concomitant]
     Route: 065
  6. ZOLOFT [Concomitant]
     Route: 065
  7. ELAVIL [Concomitant]
     Route: 065
  8. AMBIEN [Concomitant]
     Route: 065
  9. SOMA [Concomitant]
     Route: 065
  10. OXYCODONE [Concomitant]
     Route: 065
  11. ASPIRIN [Concomitant]
     Route: 065
  12. TENORMIN [Concomitant]
     Route: 065

REACTIONS (14)
  - BRONCHITIS [None]
  - CATARACT [None]
  - CEREBRAL HAEMORRHAGE [None]
  - CEREBRAL INFARCTION [None]
  - CONSTIPATION [None]
  - DEPRESSION [None]
  - DYSPHAGIA [None]
  - ERYTHEMA [None]
  - HAEMORRHOIDS [None]
  - NAUSEA [None]
  - OESOPHAGEAL STENOSIS [None]
  - PNEUMONIA [None]
  - TRANSIENT ISCHAEMIC ATTACK [None]
  - WRONG TECHNIQUE IN DRUG USAGE PROCESS [None]
